FAERS Safety Report 6629427-4 (Version None)
Quarter: 2010Q1

REPORT INFORMATION
  Report Type: 
  Country: None (occurrence: None)
  Receive Date: 20100311
  Receipt Date: 20090810
  Transmission Date: 20100710
  Serious: No
  Sender: FDA-Public Use
  Company Number: US-BIOGENIDEC-2009BI021986

PATIENT
  Sex: Female

DRUGS (1)
  1. AVONEX [Suspect]
     Indication: MULTIPLE SCLEROSIS
     Route: 030
     Dates: start: 20080228

REACTIONS (8)
  - ASTHENIA [None]
  - DIZZINESS [None]
  - HEAD INJURY [None]
  - INFLUENZA LIKE ILLNESS [None]
  - LETHARGY [None]
  - LOSS OF CONSCIOUSNESS [None]
  - SINUSITIS [None]
  - SKIN MASS [None]
